FAERS Safety Report 5443752-4 (Version None)
Quarter: 2007Q3

REPORT INFORMATION
  Report Type: 
  Country: None (occurrence: None)
  Receive Date: 20070731
  Receipt Date: 20070531
  Transmission Date: 20080115
  Serious: No
  Sender: FDA-Public Use
  Company Number: US200706001100

PATIENT
  Age: 57 Year
  Sex: Female

DRUGS (6)
  1. BYETTA [Suspect]
     Indication: TYPE 2 DIABETES MELLITUS
     Dosage: 5 UG, 2/D, SUBCUTANEOUS   10 UG, 2/D, SUBCUTANEOUS
     Route: 058
     Dates: start: 20070403, end: 20070424
  2. BYETTA [Suspect]
     Indication: TYPE 2 DIABETES MELLITUS
     Dosage: 5 UG, 2/D, SUBCUTANEOUS   10 UG, 2/D, SUBCUTANEOUS
     Route: 058
     Dates: start: 20070424
  3. METFORMIN HCL [Concomitant]
  4. GLIPIZIDE [Concomitant]
  5. COUMADIN [Concomitant]
  6. VITAMIN B [Concomitant]

REACTIONS (4)
  - DIARRHOEA [None]
  - FAECAL INCONTINENCE [None]
  - HAIR TEXTURE ABNORMAL [None]
  - NAUSEA [None]
